FAERS Safety Report 21788147 (Version 3)
Quarter: 2023Q1

REPORT INFORMATION
  Report Type: Spontaneous
  Country: US (occurrence: US)
  Receive Date: 20221228
  Receipt Date: 20230203
  Transmission Date: 20230418
  Serious: Yes (Other)
  Sender: FDA-Public Use
  Company Number: None

PATIENT
  Age: 59 Year
  Sex: Female
  Weight: 51 kg

DRUGS (2)
  1. PROPAFENONE HYDROCHLORIDE [Suspect]
     Active Substance: PROPAFENONE HYDROCHLORIDE
     Indication: Atrial fibrillation
     Route: 048
     Dates: start: 20220106, end: 202212
  2. VITAMIN D3 [Concomitant]
     Active Substance: CHOLECALCIFEROL
     Indication: Product used for unknown indication
     Route: 065

REACTIONS (4)
  - Hyperthyroidism [Recovered/Resolved]
  - Feeling jittery [Recovered/Resolved]
  - Weight decreased [Recovered/Resolved]
  - Product substitution issue [Unknown]

NARRATIVE: CASE EVENT DATE: 20220101
